FAERS Safety Report 6256699-0 (Version None)
Quarter: 2009Q3

REPORT INFORMATION
  Report Type: 
  Country: None (occurrence: None)
  Receive Date: 20090706
  Receipt Date: 20090626
  Transmission Date: 20100115
  Serious: Yes (Hospitalization)
  Sender: FDA-Public Use
  Company Number: US-BIOGENIDEC-2009BI004173

PATIENT
  Age: 75 Year
  Sex: Female
  Weight: 68 kg

DRUGS (1)
  1. TYSABRI [Suspect]
     Indication: MULTIPLE SCLEROSIS
     Route: 042
     Dates: start: 20080415

REACTIONS (5)
  - FALL [None]
  - HEPATIC ENZYME INCREASED [None]
  - HIP FRACTURE [None]
  - MUSCLE SPASTICITY [None]
  - WHITE BLOOD CELL COUNT INCREASED [None]
